FAERS Safety Report 7794844-6 (Version None)
Quarter: 2011Q4

REPORT INFORMATION
  Report Type: 
  Country: None (occurrence: None)
  Receive Date: 20111004
  Receipt Date: 20110921
  Transmission Date: 20120403
  Serious: Yes (Other)
  Sender: FDA-Public Use
  Company Number: PHHY2011CA84458

PATIENT
  Sex: Female

DRUGS (2)
  1. ZOLEDRONOC ACID [Suspect]
     Indication: OSTEOPOROSIS
     Dosage: UNK UKN, UNK
     Route: 042
     Dates: start: 20100906
  2. ADVAIR DISKUS 100/50 [Concomitant]
     Dosage: UNK UKN, UNK

REACTIONS (7)
  - CHOKING SENSATION [None]
  - PAIN [None]
  - OROPHARYNGEAL PAIN [None]
  - DRY THROAT [None]
  - MOBILITY DECREASED [None]
  - DYSPNOEA [None]
  - DRY MOUTH [None]
